FAERS Safety Report 11975390 (Version 5)
Quarter: 2016Q4

REPORT INFORMATION
  Report Type: Report from Study
  Country: None (occurrence: DE)
  Receive Date: 20160128
  Receipt Date: 20161205
  Transmission Date: 20170206
  Serious: Yes (Hospitalization, Other)
  Sender: FDA-Public Use
  Company Number: DE-ABBVIE-16K-062-1543490-00

PATIENT
  Age: 63 Year
  Sex: Male
  Weight: 130 kg

DRUGS (16)
  1. LISINOPRIL. [Concomitant]
     Active Substance: LISINOPRIL
     Indication: PRODUCT USED FOR UNKNOWN INDICATION
  2. HUMIRA [Suspect]
     Active Substance: ADALIMUMAB
     Indication: PSORIASIS
     Route: 058
     Dates: start: 2005
  3. SPIRONOLACTON [Concomitant]
     Active Substance: SPIRONOLACTONE
     Dates: start: 20151017
  4. LERCANIDIPIN [Concomitant]
     Active Substance: LERCANIDIPINE
     Indication: PRODUCT USED FOR UNKNOWN INDICATION
  5. HUMIRA [Suspect]
     Active Substance: ADALIMUMAB
     Route: 058
     Dates: start: 201511
  6. HUMIRA [Suspect]
     Active Substance: ADALIMUMAB
     Route: 058
     Dates: start: 20101207, end: 20150915
  7. MTX [Suspect]
     Active Substance: METHOTREXATE SODIUM
     Indication: PSORIASIS
     Route: 065
     Dates: start: 2005
  8. HCT [Concomitant]
     Active Substance: HYDROCHLOROTHIAZIDE
     Indication: PRODUCT USED FOR UNKNOWN INDICATION
  9. MTX [Suspect]
     Active Substance: METHOTREXATE SODIUM
     Route: 058
     Dates: start: 20110222, end: 201509
  10. MTX [Suspect]
     Active Substance: METHOTREXATE SODIUM
     Route: 058
     Dates: start: 201511
  11. L-THYROXIN [Concomitant]
     Active Substance: LEVOTHYROXINE SODIUM
     Indication: PRODUCT USED FOR UNKNOWN INDICATION
  12. METFORMIN [Concomitant]
     Active Substance: METFORMIN HYDROCHLORIDE
     Indication: PRODUCT USED FOR UNKNOWN INDICATION
  13. SITAGLIPTIN [Concomitant]
     Active Substance: SITAGLIPTIN
     Indication: PRODUCT USED FOR UNKNOWN INDICATION
  14. METFORMIN [Concomitant]
     Active Substance: METFORMIN HYDROCHLORIDE
     Dates: start: 20151017
  15. SITAGLIPTIN [Concomitant]
     Active Substance: SITAGLIPTIN
     Dates: start: 20151017
  16. SPIRONOLACTON [Concomitant]
     Active Substance: SPIRONOLACTONE
     Indication: PRODUCT USED FOR UNKNOWN INDICATION

REACTIONS (16)
  - Restrictive cardiomyopathy [Not Recovered/Not Resolved]
  - Asthenia [Unknown]
  - Toxicity to various agents [Unknown]
  - Dyspnoea exertional [Recovered/Resolved with Sequelae]
  - Palpitations [Unknown]
  - Renal impairment [Unknown]
  - Atrial fibrillation [Unknown]
  - Productive cough [Recovered/Resolved]
  - Weight decreased [Unknown]
  - Respiratory disorder [Unknown]
  - Ejection fraction abnormal [Unknown]
  - Bronchitis [Recovered/Resolved]
  - Cough [Recovered/Resolved]
  - Activities of daily living impaired [Unknown]
  - Arteriosclerosis coronary artery [Not Recovered/Not Resolved]
  - Pallor [Unknown]

NARRATIVE: CASE EVENT DATE: 2015
